FAERS Safety Report 13722966 (Version 1)
Quarter: 2017Q3

REPORT INFORMATION
  Report Type: Spontaneous
  Country: US (occurrence: US)
  Receive Date: 20170706
  Receipt Date: 20170706
  Transmission Date: 20171127
  Serious: No
  Sender: FDA-Public Use
  Company Number: US-JNJFOC-20170528690

PATIENT
  Sex: Female
  Weight: 64.41 kg

DRUGS (1)
  1. LEVAQUIN [Suspect]
     Active Substance: LEVOFLOXACIN
     Indication: SINUSITIS
     Dosage: CONTINUOUSLY TOOK MEDICATION FOR 10 DAYS
     Route: 065
     Dates: start: 201704, end: 201704

REACTIONS (2)
  - Myalgia [Unknown]
  - Tendon disorder [Unknown]
